FAERS Safety Report 25858865 (Version 1)
Quarter: 2025Q3

REPORT INFORMATION
  Report Type: Spontaneous
  Country: GB (occurrence: GB)
  Receive Date: 20250929
  Receipt Date: 20250929
  Transmission Date: 20251021
  Serious: Yes (Life-Threatening, Other)
  Sender: MYLAN
  Company Number: None

PATIENT
  Age: 69 Year
  Sex: Male

DRUGS (28)
  1. APIXABAN [Suspect]
     Active Substance: APIXABAN
     Indication: Product used for unknown indication
     Dosage: 5 MILLIGRAM, BID (TWICE DAILY)
  2. APIXABAN [Suspect]
     Active Substance: APIXABAN
     Dosage: 5 MILLIGRAM, BID (TWICE DAILY)
     Route: 065
  3. APIXABAN [Suspect]
     Active Substance: APIXABAN
     Dosage: 5 MILLIGRAM, BID (TWICE DAILY)
     Route: 065
  4. APIXABAN [Suspect]
     Active Substance: APIXABAN
     Dosage: 5 MILLIGRAM, BID (TWICE DAILY)
  5. ASPIRIN [Concomitant]
     Active Substance: ASPIRIN
     Dosage: 1 DOSAGE FORM, QD (ONE TO BE TAKEN EACH DAY)
  6. ASPIRIN [Concomitant]
     Active Substance: ASPIRIN
     Dosage: 1 DOSAGE FORM, QD (ONE TO BE TAKEN EACH DAY)
     Route: 065
  7. ASPIRIN [Concomitant]
     Active Substance: ASPIRIN
     Dosage: 1 DOSAGE FORM, QD (ONE TO BE TAKEN EACH DAY)
     Route: 065
  8. ASPIRIN [Concomitant]
     Active Substance: ASPIRIN
     Dosage: 1 DOSAGE FORM, QD (ONE TO BE TAKEN EACH DAY)
  9. NORTRIPTYLINE [Concomitant]
     Active Substance: NORTRIPTYLINE
     Dosage: 2 DOSAGE FORM, PM (TWO TO BE TAKEN AT NIGHT)
  10. NORTRIPTYLINE [Concomitant]
     Active Substance: NORTRIPTYLINE
     Dosage: 2 DOSAGE FORM, PM (TWO TO BE TAKEN AT NIGHT)
     Route: 065
  11. NORTRIPTYLINE [Concomitant]
     Active Substance: NORTRIPTYLINE
     Dosage: 2 DOSAGE FORM, PM (TWO TO BE TAKEN AT NIGHT)
     Route: 065
  12. NORTRIPTYLINE [Concomitant]
     Active Substance: NORTRIPTYLINE
     Dosage: 2 DOSAGE FORM, PM (TWO TO BE TAKEN AT NIGHT)
  13. PREGABALIN [Concomitant]
     Active Substance: PREGABALIN
     Dosage: 1 DOSAGE FORM, BID (ONE TO BE TAKEN TWICE A DAY)
  14. PREGABALIN [Concomitant]
     Active Substance: PREGABALIN
     Dosage: 1 DOSAGE FORM, BID (ONE TO BE TAKEN TWICE A DAY)
     Route: 065
  15. PREGABALIN [Concomitant]
     Active Substance: PREGABALIN
     Dosage: 1 DOSAGE FORM, BID (ONE TO BE TAKEN TWICE A DAY)
     Route: 065
  16. PREGABALIN [Concomitant]
     Active Substance: PREGABALIN
     Dosage: 1 DOSAGE FORM, BID (ONE TO BE TAKEN TWICE A DAY)
  17. METFORMIN [Concomitant]
     Active Substance: METFORMIN HYDROCHLORIDE
     Dosage: 1 DOSAGE FORM, AM (ONE DAILY IN THE MORNING)
  18. METFORMIN [Concomitant]
     Active Substance: METFORMIN HYDROCHLORIDE
     Dosage: 1 DOSAGE FORM, AM (ONE DAILY IN THE MORNING)
     Route: 065
  19. METFORMIN [Concomitant]
     Active Substance: METFORMIN HYDROCHLORIDE
     Dosage: 1 DOSAGE FORM, AM (ONE DAILY IN THE MORNING)
     Route: 065
  20. METFORMIN [Concomitant]
     Active Substance: METFORMIN HYDROCHLORIDE
     Dosage: 1 DOSAGE FORM, AM (ONE DAILY IN THE MORNING)
  21. DAPAGLIFLOZIN [Concomitant]
     Active Substance: DAPAGLIFLOZIN
     Dosage: 1 DOSAGE FORM, QD  (ONE TO BE TAKEN DAILY)
  22. DAPAGLIFLOZIN [Concomitant]
     Active Substance: DAPAGLIFLOZIN
     Dosage: 1 DOSAGE FORM, QD  (ONE TO BE TAKEN DAILY)
     Route: 065
  23. DAPAGLIFLOZIN [Concomitant]
     Active Substance: DAPAGLIFLOZIN
     Dosage: 1 DOSAGE FORM, QD  (ONE TO BE TAKEN DAILY)
     Route: 065
  24. DAPAGLIFLOZIN [Concomitant]
     Active Substance: DAPAGLIFLOZIN
     Dosage: 1 DOSAGE FORM, QD  (ONE TO BE TAKEN DAILY)
  25. ATORVASTATIN [Concomitant]
     Active Substance: ATORVASTATIN
     Dosage: 1 DOSAGE FORM, PM (20 MG TABLETS ONE TO BE TAKEN EVERY NIGHT)
  26. ATORVASTATIN [Concomitant]
     Active Substance: ATORVASTATIN
     Dosage: 1 DOSAGE FORM, PM (20 MG TABLETS ONE TO BE TAKEN EVERY NIGHT)
     Route: 065
  27. ATORVASTATIN [Concomitant]
     Active Substance: ATORVASTATIN
     Dosage: 1 DOSAGE FORM, PM (20 MG TABLETS ONE TO BE TAKEN EVERY NIGHT)
     Route: 065
  28. ATORVASTATIN [Concomitant]
     Active Substance: ATORVASTATIN
     Dosage: 1 DOSAGE FORM, PM (20 MG TABLETS ONE TO BE TAKEN EVERY NIGHT)

REACTIONS (1)
  - Pulmonary embolism [Unknown]
